FAERS Safety Report 9009177 (Version 2)
Quarter: 2013Q1

REPORT INFORMATION
  Report Type: Spontaneous
  Country: US (occurrence: US)
  Receive Date: 20130111
  Receipt Date: 20130117
  Transmission Date: 20140127
  Serious: Yes (Hospitalization, Other)
  Sender: FDA-Public Use
  Company Number: US-PFIZER INC-2012240739

PATIENT
  Age: 42 Year
  Sex: Female
  Weight: 99.8 kg

DRUGS (2)
  1. LYRICA [Suspect]
     Indication: NEUROPATHY PERIPHERAL
     Dosage: 75 MG, 1X/DAY
     Route: 048
  2. PROTONIX [Suspect]
     Dosage: UNK

REACTIONS (2)
  - Aortic valve disease [Unknown]
  - Mitral valve disease [Unknown]
